FAERS Safety Report 11563219 (Version 1)
Quarter: 2015Q3

REPORT INFORMATION
  Report Type: Report from Study
  Country: JP (occurrence: JP)
  Receive Date: 20150928
  Receipt Date: 20150928
  Transmission Date: 20151125
  Serious: Yes (Death, Hospitalization)
  Sender: FDA-Public Use
  Company Number: JP-B.I. PHARMACEUTICALS,INC./RIDGEFIELD-2015-BI-52948NB

PATIENT
  Age: 62 Year
  Sex: Male
  Weight: 48.4 kg

DRUGS (5)
  1. GILOTRIF [Suspect]
     Active Substance: AFATINIB
     Dosage: 30 MG
     Route: 048
     Dates: start: 20150210, end: 20150309
  2. GILOTRIF [Suspect]
     Active Substance: AFATINIB
     Dosage: 20 MG
     Route: 048
     Dates: start: 20150310, end: 20150329
  3. GILOTRIF [Suspect]
     Active Substance: AFATINIB
     Dosage: 20 MG
     Route: 048
     Dates: start: 20150120, end: 20150209
  4. GILOTRIF [Suspect]
     Active Substance: AFATINIB
     Dosage: 30 MG
     Route: 048
     Dates: start: 20150330, end: 20150505
  5. GILOTRIF [Suspect]
     Active Substance: AFATINIB
     Indication: LUNG ADENOCARCINOMA
     Dosage: 40 MG
     Route: 048
     Dates: start: 20141217, end: 20150115

REACTIONS (3)
  - Dizziness [Not Recovered/Not Resolved]
  - Malignant neoplasm progression [Fatal]
  - Liver disorder [Recovered/Resolved]

NARRATIVE: CASE EVENT DATE: 20150114
